FAERS Safety Report 13827700 (Version 4)
Quarter: 2017Q4

REPORT INFORMATION
  Report Type: Report from Study
  Country: None (occurrence: US)
  Receive Date: 20170803
  Receipt Date: 20171010
  Transmission Date: 20180320
  Serious: Yes (Hospitalization, Other)
  Sender: FDA-Public Use
  Company Number: US-ABBVIE-17K-163-2056531-00

PATIENT
  Age: 68 Year
  Sex: Male

DRUGS (5)
  1. ANDROGEL [Suspect]
     Active Substance: TESTOSTERONE
     Dosage: ONE PUMP
     Route: 061
     Dates: start: 201707, end: 2017
  2. PROTONIX [Concomitant]
     Active Substance: PANTOPRAZOLE SODIUM
     Indication: PRODUCT USED FOR UNKNOWN INDICATION
  3. LEVAQUIN [Suspect]
     Active Substance: LEVOFLOXACIN
     Indication: PROPHYLAXIS
     Route: 065
     Dates: start: 2017
  4. ANDROGEL [Suspect]
     Active Substance: TESTOSTERONE
     Dosage: ONE PUMP
     Route: 061
     Dates: start: 20171002
  5. ANDROGEL [Suspect]
     Active Substance: TESTOSTERONE
     Indication: BLOOD TESTOSTERONE DECREASED
     Dosage: ONE PUMP
     Route: 061
     Dates: end: 2017

REACTIONS (8)
  - Prostatic specific antigen increased [Unknown]
  - Libido decreased [Unknown]
  - Fatigue [Unknown]
  - Fall [Recovered/Resolved]
  - Muscle rupture [Recovered/Resolved]
  - Femoroacetabular impingement [Recovered/Resolved]
  - Arthritis [Not Recovered/Not Resolved]
  - Gait disturbance [Not Recovered/Not Resolved]

NARRATIVE: CASE EVENT DATE: 201612
